FAERS Safety Report 6596893-2 (Version None)
Quarter: 2010Q1

REPORT INFORMATION
  Report Type: 
  Country: None (occurrence: None)
  Receive Date: 20100222
  Receipt Date: 20100222
  Transmission Date: 20100710
  Serious: Yes (Disabling)
  Sender: FDA-Public Use
  Company Number: None

PATIENT
  Sex: Male
  Weight: 81.6475 kg

DRUGS (4)
  1. LIPITOR [Suspect]
     Indication: BLOOD CHOLESTEROL INCREASED
     Dosage: Q.D. ORAL
     Route: 048
     Dates: start: 20030101
  2. PRAVACHOL [Concomitant]
  3. VYTORIN [Concomitant]
  4. ZETIA [Concomitant]

REACTIONS (4)
  - ASTHENIA [None]
  - MYALGIA [None]
  - PAIN [None]
  - TREATMENT NONCOMPLIANCE [None]
